FAERS Safety Report 10277162 (Version 2)
Quarter: 2016Q1

REPORT INFORMATION
  Report Type: Spontaneous
  Country: US (occurrence: US)
  Receive Date: 20140703
  Receipt Date: 20160203
  Transmission Date: 20160525
  Serious: Yes (Other)
  Sender: FDA-Public Use
  Company Number: US-PFIZER INC-2014182188

PATIENT
  Age: 61 Year
  Sex: Male
  Weight: 74.84 kg

DRUGS (8)
  1. LYRICA [Suspect]
     Active Substance: PREGABALIN
     Indication: NERVE COMPRESSION
     Dosage: 25 MG, UNK
     Route: 048
     Dates: start: 2007
  2. AMLODIPINE BESILATE [Suspect]
     Active Substance: AMLODIPINE BESYLATE
     Indication: HYPERTENSION
     Dosage: 10 MG, 1X/DAY
     Route: 048
     Dates: start: 201201
  3. LYRICA [Suspect]
     Active Substance: PREGABALIN
     Dosage: 600 MG, 1X/DAY
     Route: 048
     Dates: start: 2012
  4. METOPROLOL TARTRATE. [Suspect]
     Active Substance: METOPROLOL TARTRATE
     Indication: HYPERTENSION
     Dosage: 50 MG, 1X/DAY
     Dates: end: 2012
  5. METOPROLOL TARTRATE. [Suspect]
     Active Substance: METOPROLOL TARTRATE
     Dosage: 100 MG, 1X/DAY
     Dates: start: 2012
  6. LYRICA [Suspect]
     Active Substance: PREGABALIN
     Dosage: 75 MG, 1X/DAY
     Route: 048
     Dates: start: 2007, end: 2012
  7. LYRICA [Suspect]
     Active Substance: PREGABALIN
     Dosage: 900 MG, 1X/DAY
     Route: 048
  8. IBUPROFEN. [Concomitant]
     Active Substance: IBUPROFEN
     Indication: ARTHRALGIA
     Dosage: UNK

REACTIONS (11)
  - Overdose [Unknown]
  - Foreign body [Unknown]
  - Syncope [Unknown]
  - Accident [Unknown]
  - Product size issue [Unknown]
  - Renal disorder [Unknown]
  - Drug ineffective [Unknown]
  - Dysphagia [Unknown]
  - Feeling abnormal [Unknown]
  - Throat irritation [Unknown]
  - Inflammation [Unknown]

NARRATIVE: CASE EVENT DATE: 2012
